FAERS Safety Report 5419202-0 (Version None)
Quarter: 2007Q3

REPORT INFORMATION
  Report Type: 
  Country: None (occurrence: None)
  Receive Date: 20070820
  Receipt Date: 20070813
  Transmission Date: 20080115
  Serious: Yes (Hospitalization)
  Sender: FDA-Public Use
  Company Number: US-ROXANE LABORATORIES, INC-2007-BP-19052RO

PATIENT
  Age: 57 Year
  Sex: Male

DRUGS (17)
  1. MIDAZOLAM HCL [Suspect]
     Indication: ANAESTHESIA
  2. BENZOCAINE [Suspect]
     Indication: LOCAL ANAESTHESIA
  3. BUTYL AMINOBENZOATE [Suspect]
     Indication: LOCAL ANAESTHESIA
  4. TETRACAINE [Suspect]
     Indication: LOCAL ANAESTHESIA
  5. FUROSEMIDE [Concomitant]
  6. POTASSIUM CHLORIDE [Concomitant]
  7. LISINOPRIL [Concomitant]
  8. PANTOPRAZOLE SODIUM [Concomitant]
  9. GLIPIZIDE [Concomitant]
  10. METOPROLOL SUCCINATE [Concomitant]
  11. METFORMIN HCL [Concomitant]
  12. REGULAR INSULIN [Concomitant]
     Indication: TYPE 2 DIABETES MELLITUS
  13. ACETAMINOPHEN [Concomitant]
  14. ZOLPIDEM TARTRATE [Concomitant]
  15. MORPHINE [Concomitant]
  16. ONDANSETRON [Concomitant]
  17. VANCOMYCIN [Concomitant]
     Indication: STAPHYLOCOCCAL INFECTION
     Route: 042

REACTIONS (2)
  - CYANOSIS [None]
  - METHAEMOGLOBINAEMIA [None]
